FAERS Safety Report 11490586 (Version 1)
Quarter: 2015Q3

REPORT INFORMATION
  Report Type: Spontaneous
  Country: US (occurrence: US)
  Receive Date: 20150910
  Receipt Date: 20150910
  Transmission Date: 20151125
  Serious: Yes (Other)
  Sender: FDA-Public Use
  Company Number: US-SANOFI-AVENTIS-2012SA003088

PATIENT
  Sex: Female

DRUGS (4)
  1. PLAVIX [Suspect]
     Active Substance: CLOPIDOGREL BISULFATE
     Indication: CEREBROVASCULAR ACCIDENT
     Route: 048
     Dates: start: 200312, end: 20101111
  2. PLAVIX [Suspect]
     Active Substance: CLOPIDOGREL BISULFATE
     Indication: INJURY
     Route: 048
     Dates: start: 200312, end: 20101111
  3. COUMADIN [Concomitant]
     Active Substance: WARFARIN SODIUM
  4. PLAVIX [Suspect]
     Active Substance: CLOPIDOGREL BISULFATE
     Indication: TRANSIENT ISCHAEMIC ATTACK
     Route: 048
     Dates: start: 200312, end: 20101111

REACTIONS (5)
  - Injury [Unknown]
  - Blindness unilateral [Unknown]
  - Gastrointestinal haemorrhage [Unknown]
  - Retinal haemorrhage [Unknown]
  - Visual impairment [Unknown]

NARRATIVE: CASE EVENT DATE: 200708
